FAERS Safety Report 6361018-5 (Version None)
Quarter: 2009Q3

REPORT INFORMATION
  Report Type: 
  Country: None (occurrence: None)
  Receive Date: 20090915
  Receipt Date: 20090915
  Transmission Date: 20100115
  Serious: Yes (Other)
  Sender: FDA-Public Use
  Company Number: None

PATIENT
  Age: 50 Year
  Sex: Female
  Weight: 113.3993 kg

DRUGS (1)
  1. LEVAQUIN [Suspect]
     Indication: SINUSITIS BACTERIAL
     Dosage: 500 MG DAILY PO   6 DAYS OF 10
     Route: 048
     Dates: start: 20090716, end: 20090721

REACTIONS (7)
  - ARTHRALGIA [None]
  - CARPAL TUNNEL SYNDROME [None]
  - GRIP STRENGTH DECREASED [None]
  - HYPOAESTHESIA [None]
  - MUSCULAR WEAKNESS [None]
  - OEDEMA PERIPHERAL [None]
  - TENDONITIS [None]
